FAERS Safety Report 8426700-4 (Version None)
Quarter: 2012Q2

REPORT INFORMATION
  Report Type: 
  Country: None (occurrence: None)
  Receive Date: 20120323
  Receipt Date: 20111108
  Transmission Date: 20120825
  Serious: Yes (Hospitalization)
  Sender: FDA-Public Use
  Company Number: 163-21880-11043703

PATIENT
  Age: 62 Year
  Sex: Male

DRUGS (1)
  1. REVLIMID [Suspect]
     Indication: MULTIPLE MYELOMA
     Dosage: 10 MG, EVERY OTHER DAY, PO
     Route: 048
     Dates: start: 20110201

REACTIONS (3)
  - RASH ERYTHEMATOUS [None]
  - RENAL FAILURE [None]
  - RASH PRURITIC [None]
